FAERS Safety Report 4798385-X (Version None)
Quarter: 2005Q4

REPORT INFORMATION
  Report Type: 
  Country: None (occurrence: None)
  Receive Date: 20051014
  Receipt Date: 20051007
  Transmission Date: 20060501
  Serious: Yes (Other)
  Sender: FDA-Public Use
  Company Number: PHFR2005GB03335

PATIENT
  Sex: Male

DRUGS (1)
  1. MELLARIL [Suspect]
     Route: 065

REACTIONS (1)
  - MUSCLE DISORDER [None]
